FAERS Safety Report 18162299 (Version 1)
Quarter: 2020Q3

REPORT INFORMATION
  Report Type: Spontaneous
  Country: US (occurrence: US)
  Receive Date: 20200818
  Receipt Date: 20200818
  Transmission Date: 20201103
  Serious: No
  Sender: FDA-Public Use
  Company Number: None

PATIENT
  Age: 79 Year
  Sex: Female
  Weight: 79.16 kg

DRUGS (13)
  1. ALPRAZOLAM. [Concomitant]
     Active Substance: ALPRAZOLAM
  2. BENADRYL [Concomitant]
     Active Substance: DIPHENHYDRAMINE HYDROCHLORIDE
  3. DEXAMETHASONE. [Concomitant]
     Active Substance: DEXAMETHASONE
  4. XPOVIO [Suspect]
     Active Substance: SELINEXOR
     Indication: PLASMA CELL MYELOMA
     Dosage: ?          OTHER FREQUENCY:2 TIMES A WEEK;?
     Route: 048
     Dates: start: 20200728
  5. ACYCLOVIR. [Concomitant]
     Active Substance: ACYCLOVIR
  6. LIDOCAINE?PRILOCAINE [Concomitant]
     Active Substance: LIDOCAINE\PRILOCAINE
  7. ONDANSETRON [Concomitant]
     Active Substance: ONDANSETRON
  8. TYLENOL [Concomitant]
     Active Substance: ACETAMINOPHEN
  9. DILTIAZEM. [Concomitant]
     Active Substance: DILTIAZEM
  10. METOPROLOL. [Concomitant]
     Active Substance: METOPROLOL
  11. LEVOTHYROXINE. [Concomitant]
     Active Substance: LEVOTHYROXINE
  12. XGEVA [Concomitant]
     Active Substance: DENOSUMAB
  13. XARELTO [Concomitant]
     Active Substance: RIVAROXABAN

REACTIONS (1)
  - Fatigue [None]

NARRATIVE: CASE EVENT DATE: 20200818
